FAERS Safety Report 8159066-8 (Version None)
Quarter: 2012Q1

REPORT INFORMATION
  Report Type: 
  Country: None (occurrence: None)
  Receive Date: 20120103
  Receipt Date: 20110926
  Transmission Date: 20120608
  Serious: No
  Sender: FDA-Public Use
  Company Number: AE-2011-001410

PATIENT
  Age: 50 Year
  Sex: Female
  Weight: 63.9572 kg

DRUGS (3)
  1. INCIVEK [Suspect]
     Dosage: 2250 MG (750 MG,  1 IN 8 HR)M, ORAL
     Route: 048
     Dates: start: 20110820
  2. COPEGUS [Concomitant]
  3. PEGASYS [Concomitant]

REACTIONS (4)
  - SINUS DISORDER [None]
  - DRY EYE [None]
  - EYE IRRITATION [None]
  - HEADACHE [None]
